FAERS Safety Report 22653242 (Version 1)
Quarter: 2023Q2

REPORT INFORMATION
  Report Type: Spontaneous
  Country: US (occurrence: US)
  Receive Date: 20230629
  Receipt Date: 20230629
  Transmission Date: 20230722
  Serious: Yes (Other)
  Sender: FDA-Public Use
  Company Number: US-PFIZER INC-202300231528

PATIENT
  Age: 13 Year
  Sex: Male
  Weight: 83.91 kg

DRUGS (2)
  1. GENOTROPIN [Suspect]
     Active Substance: SOMATROPIN
     Indication: Growth hormone deficiency
     Dosage: 2.8 MG ONCE A DAY 6 DAYS A WEEK
     Dates: start: 202306
  2. LANTUS [Concomitant]
     Active Substance: INSULIN GLARGINE
     Dosage: 20 IU, DAILY (ABOUT 20 UNITS EVERY NIGHT)

REACTIONS (6)
  - Diabetes mellitus [Unknown]
  - Disease recurrence [Unknown]
  - Wrong technique in device usage process [Unknown]
  - Device use error [Unknown]
  - Device physical property issue [Unknown]
  - Device leakage [Unknown]

NARRATIVE: CASE EVENT DATE: 20230601
